FAERS Safety Report 5278277-2 (Version None)
Quarter: 2007Q1

REPORT INFORMATION
  Report Type: 
  Country: None (occurrence: None)
  Receive Date: 20070328
  Receipt Date: 20070315
  Transmission Date: 20070707
  Serious: Yes (Other)
  Sender: FDA-Public Use
  Company Number: PHBS2007JP04766

PATIENT
  Age: 55 Year
  Sex: Male

DRUGS (1)
  1. DIOVAN [Suspect]
     Dosage: 20 MG/DAY
     Route: 048
     Dates: start: 20041101, end: 20050101

REACTIONS (1)
  - AGRANULOCYTOSIS [None]
